FAERS Safety Report 9268791 (Version 1)
Quarter: 2013Q2

REPORT INFORMATION
  Report Type: Spontaneous
  Country: US (occurrence: US)
  Receive Date: 20130502
  Receipt Date: 20130502
  Transmission Date: 20140414
  Serious: No
  Sender: FDA-Public Use
  Company Number: US-009507513-1304USA014906

PATIENT
  Sex: 0
  Weight: 70.3 kg

DRUGS (1)
  1. NEXPLANON [Suspect]
     Dosage: STANDARD PACKAGE OF PF APPLI OF 1
     Route: 059
     Dates: start: 20130419

REACTIONS (2)
  - Device difficult to use [Unknown]
  - No adverse event [Unknown]
